FAERS Safety Report 9449629 (Version 1)
Quarter: 2013Q3

REPORT INFORMATION
  Report Type: Spontaneous
  Country: US (occurrence: US)
  Receive Date: 20130809
  Receipt Date: 20130809
  Transmission Date: 20140515
  Serious: No
  Sender: FDA-Public Use
  Company Number: US-PFIZER INC-2013228425

PATIENT
  Sex: Female

DRUGS (8)
  1. LATANOPROST [Suspect]
     Indication: GLAUCOMA
     Dosage: 1 GTT, 1X/DAY
     Route: 047
  2. BETOPTIC-S [Suspect]
     Indication: GLAUCOMA
     Dosage: UNK
     Route: 047
     Dates: start: 2007
  3. TRUSOPT [Suspect]
     Indication: GLAUCOMA
     Dosage: UNK
     Route: 047
     Dates: start: 2008
  4. BETAXOLOL HYDROCHLORIDE [Suspect]
     Indication: GLAUCOMA
     Dosage: UNK
     Route: 047
  5. TIMOPTIC [Suspect]
     Indication: GLAUCOMA
     Dosage: UNK
     Route: 047
  6. FOLIC ACID [Concomitant]
     Dosage: UNK
  7. BEFIX [Concomitant]
     Dosage: UNK
  8. BABY ASPIRIN [Concomitant]
     Dosage: UNK

REACTIONS (1)
  - Ocular hyperaemia [Recovering/Resolving]
